FAERS Safety Report 16952070 (Version 1)
Quarter: 2019Q4

REPORT INFORMATION
  Report Type: Spontaneous
  Country: US (occurrence: US)
  Receive Date: 20191023
  Receipt Date: 20191023
  Transmission Date: 20200122
  Serious: Yes (Other)
  Sender: FDA-Public Use
  Company Number: US-PFIZER INC-2019455465

PATIENT
  Age: 51 Year
  Sex: Male

DRUGS (3)
  1. CIALIS [Suspect]
     Active Substance: TADALAFIL
     Indication: ERECTILE DYSFUNCTION
     Dosage: 10 MG, 5 DAYS PER WEEK
     Route: 048
     Dates: start: 20050214, end: 20140217
  2. CIALIS [Suspect]
     Active Substance: TADALAFIL
     Dosage: 20 MG, 5 DAYS PER WEEK
     Route: 048
     Dates: start: 20050214, end: 20140217
  3. VIAGRA [Suspect]
     Active Substance: SILDENAFIL CITRATE
     Indication: ERECTILE DYSFUNCTION
     Dosage: UNK
     Route: 048

REACTIONS (4)
  - Malignant melanoma [Unknown]
  - Neoplasm recurrence [Unknown]
  - Malignant melanoma stage IV [Unknown]
  - Neoplasm progression [Unknown]

NARRATIVE: CASE EVENT DATE: 20140512
